FAERS Safety Report 9759126 (Version 1)
Quarter: 2013Q1

REPORT INFORMATION
  Report Type: Spontaneous
  Country: US (occurrence: None)
  Receive Date: 20130305
  Receipt Date: 20130305
  Transmission Date: 20140127
  Serious: Yes (Other)
  Sender: FDA-Public Use
  Company Number: 163-21880-12110685(0)

PATIENT
  Age: 74 Year
  Sex: Male

DRUGS (1)
  1. REVLIMIB (LENALIDOMIDE) (CAPSULES) [Suspect]
     Indication: PLASMA CELL MYELOMA
     Dosage: 15 MG, 14 IN 14  D, PO?25 MG, 14 IN 14 D, PO ?15 MG, 21 IN 21 D, PO ?10 MG, 21 IN 21 D, PO

REACTIONS (2)
  - Neuropathy peripheral [None]
  - Hypoaesthesia [None]
